FAERS Safety Report 13446197 (Version 2)
Quarter: 2017Q2

REPORT INFORMATION
  Report Type: Spontaneous
  Country: JP (occurrence: JP)
  Receive Date: 20170417
  Receipt Date: 20170425
  Transmission Date: 20170830
  Serious: Yes (Death, Hospitalization, Other)
  Sender: FDA-Public Use
  Company Number: JP-STRIDES ARCOLAB LIMITED-2017SP006249

PATIENT

DRUGS (6)
  1. TACROLIMUS. [Suspect]
     Active Substance: TACROLIMUS
     Indication: LIVER TRANSPLANT
     Dosage: 4 MG/DAY, UNK
     Route: 065
  2. PREDNISOLONE. [Suspect]
     Active Substance: PREDNISOLONE
     Indication: LIVER TRANSPLANT
     Dosage: 5 MG/DAY, UNK
     Route: 065
  3. MYCOPHENOLATE MOFETIL. [Suspect]
     Active Substance: MYCOPHENOLATE MOFETIL
     Indication: LIVER TRANSPLANT
     Dosage: 1000 MG/DAY, UNK
     Route: 065
  4. MYCOPHENOLATE MOFETIL. [Suspect]
     Active Substance: MYCOPHENOLATE MOFETIL
     Dosage: 2000 MG/DAY, UNK
     Route: 065
  5. PREDNISOLONE. [Suspect]
     Active Substance: PREDNISOLONE
     Dosage: UNK
     Route: 048
  6. MYCOPHENOLATE MOFETIL. [Suspect]
     Active Substance: MYCOPHENOLATE MOFETIL
     Dosage: UNK
     Route: 065

REACTIONS (12)
  - Histiocytosis haematophagic [Fatal]
  - Intestinal haemorrhage [Recovered/Resolved]
  - Cytomegalovirus infection [Unknown]
  - Thrombocytopenia [Unknown]
  - Epstein-Barr virus infection [Recovered/Resolved]
  - Serum ferritin increased [Unknown]
  - Ileal ulcer [Unknown]
  - Post transplant lymphoproliferative disorder [Recovered/Resolved]
  - Coagulopathy [Unknown]
  - Thrombotic microangiopathy [Fatal]
  - Fungal infection [Unknown]
  - Hyperbilirubinaemia [Unknown]
